FAERS Safety Report 6343338-3 (Version None)
Quarter: 2009Q3

REPORT INFORMATION
  Report Type: 
  Country: None (occurrence: None)
  Receive Date: 20090908
  Receipt Date: 20090828
  Transmission Date: 20100115
  Serious: Yes (Other)
  Sender: FDA-Public Use
  Company Number: PHHY2009IT36731

PATIENT
  Sex: Female

DRUGS (2)
  1. ZOMETA [Suspect]
     Indication: BREAST CANCER
     Dosage: 4 MG, QMO
     Route: 042
     Dates: start: 20060401, end: 20080301
  2. FEMARA [Concomitant]
     Dosage: 2.5 MG, UNK
     Route: 048

REACTIONS (1)
  - OSTEOMYELITIS [None]
